FAERS Safety Report 7655668-3 (Version None)
Quarter: 2011Q3

REPORT INFORMATION
  Report Type: 
  Country: None (occurrence: None)
  Receive Date: 20110804
  Receipt Date: 20110801
  Transmission Date: 20111222
  Serious: Yes (Other)
  Sender: FDA-Public Use
  Company Number: DE-PFIZER INC-2011097163

PATIENT
  Age: 63 Year
  Sex: Female

DRUGS (19)
  1. VITIS VINIFERA [Concomitant]
  2. PANKREATIN [Concomitant]
  3. PANTHENOL [Concomitant]
     Dosage: 100 MG, UNK
  4. HEPA ^LOGES^ [Concomitant]
  5. LINOLADIOL [Concomitant]
  6. IBUPROFEN [Concomitant]
     Dosage: 600 MG, UNK
  7. LEFAX [Concomitant]
  8. SALICYLATES [Concomitant]
  9. ASCORBIC ACID [Concomitant]
  10. RIFUN [Concomitant]
     Dosage: 40 MG DAILY
  11. DIACARD [Concomitant]
  12. SINUC [Concomitant]
  13. PIRETANIDE SODIUM [Concomitant]
     Dosage: 0.5 DF, UNK
  14. PHOSETAMIN [Concomitant]
  15. PANTOPRAZOLE [Suspect]
     Indication: GASTROOESOPHAGEAL REFLUX DISEASE
     Dosage: 40 MG, DAILY
     Route: 048
     Dates: start: 20101221
  16. BUFLOMEDIL HYDROCHLORIDE [Concomitant]
     Dosage: 80 MG, UNK
  17. PROTHYRID [Concomitant]
     Dosage: 0.5 DF, 2X/WEEK
  18. CEFASEL [Concomitant]
  19. ASPIRIN [Concomitant]
     Dosage: 100 MG, UNK

REACTIONS (9)
  - DYSPEPSIA [None]
  - VAGINAL FISTULA [None]
  - GASTROINTESTINAL PAIN [None]
  - MALAISE [None]
  - VEIN DISCOLOURATION [None]
  - SKIN MASS [None]
  - CHROMATURIA [None]
  - VARICOSE VEIN [None]
  - DYSURIA [None]
